FAERS Safety Report 10008617 (Version 2)
Quarter: 2014Q1

REPORT INFORMATION
  Report Type: Spontaneous
  Country: US (occurrence: US)
  Receive Date: 20140312
  Receipt Date: 20140312
  Transmission Date: 20141002
  Serious: No
  Sender: FDA-Public Use
  Company Number: US-INCYTE CORPORATION-2012IN000093

PATIENT
  Age: 70 Year
  Sex: Female

DRUGS (7)
  1. JAKAFI [Suspect]
     Indication: SPLENOMEGALY
     Dosage: 10 MG, BID
     Route: 048
     Dates: start: 20120116
  2. AVARA [Concomitant]
     Dosage: 20 MG, QD
  3. FOLIC ACID [Concomitant]
     Dosage: 1 MG, QD
  4. HYDROCODONE [Concomitant]
     Dosage: 7.5 MG, QID
  5. COREG [Concomitant]
     Dosage: 6.25 MG, BID
  6. MIDCARD [Concomitant]
     Dosage: 40 MG, QD
  7. GABAPENTIN [Concomitant]
     Dosage: 300 MG, BID

REACTIONS (1)
  - Blister [Not Recovered/Not Resolved]
